FAERS Safety Report 9416088 (Version 1)
Quarter: 2013Q3

REPORT INFORMATION
  Report Type: Spontaneous
  Country: US (occurrence: None)
  Receive Date: 20130717
  Receipt Date: 20130717
  Transmission Date: 20140515
  Serious: Yes (Other)
  Sender: FDA-Public Use
  Company Number: 2012SA015320

PATIENT
  Age: 52 Year
  Sex: Female
  Weight: 58.51 kg

DRUGS (1)
  1. ICY HOT NO MESS / UNKNOWN / UNKNOWN [Suspect]
     Route: 061
     Dates: start: 20120224

REACTIONS (6)
  - Burns second degree [None]
  - Blister [None]
  - Pruritus [None]
  - Scar [None]
  - Inflammation [None]
  - Skin discolouration [None]
